FAERS Safety Report 9257376 (Version 2)
Quarter: 2013Q3

REPORT INFORMATION
  Report Type: Spontaneous
  Country: US (occurrence: US)
  Receive Date: 20130426
  Receipt Date: 20130812
  Transmission Date: 20140515
  Serious: Yes (Hospitalization, Other)
  Sender: FDA-Public Use
  Company Number: US-ASTRAZENECA-2013SE27824

PATIENT
  Age: 23743 Day
  Sex: Female

DRUGS (13)
  1. NEXIUM [Suspect]
     Indication: GASTROOESOPHAGEAL REFLUX DISEASE
     Route: 048
     Dates: start: 2010, end: 2012
  2. NEXIUM [Suspect]
     Indication: ULCER
     Route: 048
     Dates: start: 2010, end: 2012
  3. NEXIUM [Suspect]
     Indication: GASTROOESOPHAGEAL REFLUX DISEASE
     Route: 048
     Dates: start: 20100913
  4. NEXIUM [Suspect]
     Indication: ULCER
     Route: 048
     Dates: start: 20100913
  5. SIMVASTATIN [Concomitant]
     Indication: BLOOD CHOLESTEROL INCREASED
  6. VENLAFAXINE HCL ER [Concomitant]
     Indication: DEPRESSION
  7. DEXILANT DR [Concomitant]
     Indication: GASTROINTESTINAL DISORDER
  8. HYDROCODONE ACE [Concomitant]
     Indication: PAIN
     Dosage: 7.5 TO 3.25
  9. PREDNISONE [Concomitant]
     Indication: INFECTION
  10. CLONAZEPAM [Concomitant]
     Indication: NERVE INJURY
  11. PREMARIN [Concomitant]
     Dosage: 0.625 MG TAB
     Dates: start: 20020404
  12. SOLU MEDROL [Concomitant]
     Route: 042
     Dates: start: 20020404
  13. SOLU MEDROL [Concomitant]
     Route: 042
     Dates: start: 20020404

REACTIONS (27)
  - Extranodal marginal zone B-cell lymphoma (MALT type) [Unknown]
  - Neoplasm malignant [Unknown]
  - Pneumonia [Unknown]
  - Chronic obstructive pulmonary disease [Unknown]
  - Viral infection [Unknown]
  - Cataract [Unknown]
  - Acute respiratory failure [Unknown]
  - Osteoporosis [Unknown]
  - Bone density decreased [Unknown]
  - Foot fracture [Unknown]
  - Spinal deformity [Unknown]
  - Arthritis [Unknown]
  - Atrophy [Unknown]
  - Scoliosis [Unknown]
  - Vitamin D deficiency [Unknown]
  - Stress [Unknown]
  - Bronchitis [Unknown]
  - Intervertebral disc protrusion [Unknown]
  - Lumbar spinal stenosis [Unknown]
  - Vertebral foraminal stenosis [Unknown]
  - Spinal osteoarthritis [Unknown]
  - Cervical neuritis [Unknown]
  - Osteopenia [Unknown]
  - Neuritis [Unknown]
  - Intervertebral disc disorder [Unknown]
  - Osteoarthritis [Unknown]
  - Depression [Unknown]
